FAERS Safety Report 14256497 (Version 2)
Quarter: 2018Q1

REPORT INFORMATION
  Report Type: Spontaneous
  Country: US (occurrence: US)
  Receive Date: 20171206
  Receipt Date: 20180110
  Transmission Date: 20180508
  Serious: No
  Sender: FDA-Public Use
  Company Number: US-PFIZER INC-2017519246

PATIENT
  Age: 52 Year
  Sex: Male

DRUGS (5)
  1. BUPROPION HCL [Concomitant]
     Active Substance: BUPROPION HYDROCHLORIDE
     Dosage: 150 MG, UNK (150 MG AT 2 DAY BUPROPION HCL SR)
     Dates: start: 2000
  2. LYRICA [Suspect]
     Active Substance: PREGABALIN
     Indication: PAIN
     Dosage: 50 MG, 1X/DAY (50 MG AT NIGHT)
     Dates: start: 20171031, end: 20171119
  3. FLUOXETINE HCL [Concomitant]
     Active Substance: FLUOXETINE HYDROCHLORIDE
     Dosage: 20 MG, UNK (1 AT 20 MG FLUOXETINE HCL)
     Dates: start: 2015
  4. ACETAMINOPHEN. [Concomitant]
     Active Substance: ACETAMINOPHEN
     Dosage: UNK
     Dates: start: 1988
  5. CAFFEINE-ASPIRIN [Concomitant]
     Dosage: UNK
     Dates: start: 1988

REACTIONS (4)
  - Ear haemorrhage [Unknown]
  - Insomnia [Recovered/Resolved]
  - Abdominal discomfort [Recovered/Resolved]
  - Headache [Unknown]
